FAERS Safety Report 7472562-1 (Version None)
Quarter: 2011Q2

REPORT INFORMATION
  Report Type: 
  Country: None (occurrence: None)
  Receive Date: 20110502
  Receipt Date: 20110311
  Transmission Date: 20111010
  Serious: Yes (Other)
  Sender: FDA-Public Use
  Company Number: DSA_44918_2011

PATIENT
  Sex: Male

DRUGS (6)
  1. COGENTIN [Concomitant]
  2. TOCOPHEROL CONCENTRATE CAP [Concomitant]
  3. XENAZINE [Suspect]
     Indication: DYSKINESIA
     Dosage: 25, 50 MG BID, ORAL
     Dates: start: 20110209
  4. XENAZINE [Suspect]
     Indication: DYSKINESIA
     Dosage: 25, 50 MG BID, ORAL
     Dates: start: 20100915, end: 20110209
  5. CELEXA [Concomitant]
  6. LITHIUM CARBONATE [Concomitant]

REACTIONS (1)
  - WEIGHT DECREASED [None]
